FAERS Safety Report 12298584 (Version 3)
Quarter: 2016Q2

REPORT INFORMATION
  Report Type: Report from Study
  Country: DO (occurrence: DO)
  Receive Date: 20160425
  Receipt Date: 20160523
  Transmission Date: 20160815
  Serious: Yes (Hospitalization)
  Sender: FDA-Public Use
  Company Number: DO-ABBVIE-16P-279-1610509-00

PATIENT
  Sex: Female
  Weight: 54.48 kg

DRUGS (2)
  1. PREDNISONE. [Concomitant]
     Active Substance: PREDNISONE
     Indication: COLITIS ULCERATIVE
  2. HUMIRA [Suspect]
     Active Substance: ADALIMUMAB
     Indication: COLITIS ULCERATIVE
     Route: 058
     Dates: start: 20140413, end: 20160406

REACTIONS (9)
  - Rectal haemorrhage [Recovered/Resolved]
  - Helicobacter infection [Recovered/Resolved]
  - Weight decreased [Not Recovered/Not Resolved]
  - Haematochezia [Recovered/Resolved]
  - Amoebiasis [Recovered/Resolved]
  - Frequent bowel movements [Recovered/Resolved]
  - Mucous stools [Recovered/Resolved]
  - Dehydration [Recovered/Resolved]
  - Asthenia [Not Recovered/Not Resolved]

NARRATIVE: CASE EVENT DATE: 2016
